FAERS Safety Report 15633745 (Version 1)
Quarter: 2018Q4

REPORT INFORMATION
  Report Type: Spontaneous
  Country: US (occurrence: US)
  Receive Date: 20181119
  Receipt Date: 20181119
  Transmission Date: 20190205
  Serious: No
  Sender: FDA-Public Use
  Company Number: US-SA-2018SA314817

PATIENT
  Age: 36 Year
  Sex: Female

DRUGS (1)
  1. KEVZARA [Suspect]
     Active Substance: SARILUMAB
     Dosage: 100 MG, QOW
     Route: 058
     Dates: start: 20181018

REACTIONS (2)
  - Injection site erythema [Unknown]
  - Injection site pruritus [Unknown]
